FAERS Safety Report 19514732 (Version 1)
Quarter: 2021Q3

REPORT INFORMATION
  Report Type: Spontaneous
  Country: US (occurrence: US)
  Receive Date: 20210709
  Receipt Date: 20210709
  Transmission Date: 20211014
  Serious: Yes (Hospitalization, Other)
  Sender: FDA-Public Use
  Company Number: US-PFIZER INC-2021804559

PATIENT
  Age: 53 Year
  Sex: Female

DRUGS (1)
  1. DIPHENHYDRAMINE HCL [Suspect]
     Active Substance: DIPHENHYDRAMINE HYDROCHLORIDE
     Dosage: 25 MG (100 PILLS)
     Route: 048

REACTIONS (3)
  - Ventricular fibrillation [Recovered/Resolved]
  - Overdose [Recovered/Resolved]
  - Status epilepticus [Recovered/Resolved]
